FAERS Safety Report 25199126 (Version 1)
Quarter: 2025Q2

REPORT INFORMATION
  Report Type: Spontaneous
  Country: US (occurrence: US)
  Receive Date: 20250415
  Receipt Date: 20250415
  Transmission Date: 20250716
  Serious: No
  Sender: MYLAN
  Company Number: US-MYLANLABS-2025M1026816

PATIENT
  Sex: Male

DRUGS (1)
  1. WIXELA INHUB [Suspect]
     Active Substance: FLUTICASONE PROPIONATE\SALMETEROL XINAFOATE
     Indication: Asthma
     Dosage: 100/50 MICROGRAM, BID (ONE PUFF INTO THE LUNGS EVERY 12 HOURS, AS NEEDED)
     Dates: start: 202410

REACTIONS (4)
  - Inappropriate schedule of product administration [Unknown]
  - Device mechanical issue [Unknown]
  - Device breakage [Unknown]
  - Device malfunction [Unknown]
